FAERS Safety Report 4603132-8 (Version None)
Quarter: 2005Q1

REPORT INFORMATION
  Report Type: 
  Country: None (occurrence: None)
  Receive Date: 20050214
  Receipt Date: 20041130
  Transmission Date: 20050727
  Serious: No
  Sender: FDA-Public Use
  Company Number: USA041184884

PATIENT
  Sex: Male

DRUGS (13)
  1. CIALIS [Suspect]
     Indication: ERECTILE DYSFUNCTION
     Dosage: 10 MG
     Dates: start: 20040601
  2. AMBIEN [Concomitant]
  3. PAXIL [Concomitant]
  4. VALTREX [Concomitant]
  5. ARIMIDEX [Concomitant]
  6. TOPROL-XL [Concomitant]
  7. ZESTRIL [Concomitant]
  8. PLAVIX [Concomitant]
  9. VYTROEN [Concomitant]
  10. TRICOR [Concomitant]
  11. NIASPAN [Concomitant]
  12. ANDROGEL [Concomitant]
  13. ACIFLEX [Concomitant]

REACTIONS (2)
  - EYE SWELLING [None]
  - SWELLING FACE [None]
